FAERS Safety Report 11460381 (Version 1)
Quarter: 2015Q3

REPORT INFORMATION
  Report Type: Report from Study
  Country: US (occurrence: US)
  Receive Date: 20150904
  Receipt Date: 20150904
  Transmission Date: 20151125
  Serious: Yes (Hospitalization)
  Sender: FDA-Public Use
  Company Number: US-ABBVIE-15P-163-1453553-00

PATIENT
  Age: 60 Year
  Sex: Male

DRUGS (2)
  1. RIBAVIRIN. [Suspect]
     Active Substance: RIBAVIRIN
     Indication: HEPATITIS C
     Route: 048
     Dates: start: 20150809
  2. VIEKIRA PAK [Suspect]
     Active Substance: DASABUVIR\OMBITASVIR\PARITAPREVIR\RITONAVIR
     Indication: HEPATITIS C
     Dosage: AS DIRECTED; IN THE AM AND PM WITH FOOD
     Route: 048
     Dates: start: 20150809

REACTIONS (5)
  - Arthralgia [Recovering/Resolving]
  - Activities of daily living impaired [Unknown]
  - Gait disturbance [Unknown]
  - Joint swelling [Recovering/Resolving]
  - Skin warm [Unknown]

NARRATIVE: CASE EVENT DATE: 20150823
